FAERS Safety Report 6848212-1 (Version None)
Quarter: 2010Q3

REPORT INFORMATION
  Report Type: 
  Country: None (occurrence: None)
  Receive Date: 20100716
  Receipt Date: 20100709
  Transmission Date: 20110219
  Serious: Yes (Hospitalization)
  Sender: FDA-Public Use
  Company Number: B0665710A

PATIENT
  Sex: Female

DRUGS (5)
  1. AUGMENTIN '125' [Suspect]
     Dosage: 3000MG PER DAY
     Route: 048
     Dates: start: 20100620, end: 20100628
  2. ZYLORIC [Suspect]
     Dosage: 300MG PER DAY
     Route: 048
  3. ATENOLOL [Concomitant]
     Dosage: 50MG PER DAY
     Route: 048
  4. AIRTAL [Concomitant]
     Dosage: 50MG PER DAY
     Route: 048
  5. ASPIRIN [Concomitant]
     Dosage: 100MG PER DAY
     Route: 048

REACTIONS (2)
  - SKIN REACTION [None]
  - STEVENS-JOHNSON SYNDROME [None]
